FAERS Safety Report 14272158 (Version 1)
Quarter: 2017Q4

REPORT INFORMATION
  Report Type: Spontaneous
  Country: US (occurrence: US)
  Receive Date: 20171211
  Receipt Date: 20171211
  Transmission Date: 20180321
  Serious: No
  Sender: FDA-Public Use
  Company Number: US-ACTELION-A-NJ2017-163988

PATIENT
  Age: 65 Year
  Sex: Female
  Weight: 128.35 kg

DRUGS (1)
  1. UPTRAVI [Suspect]
     Active Substance: SELEXIPAG
     Indication: PULMONARY ARTERIAL HYPERTENSION
     Dosage: 400 MCG, BID
     Route: 048

REACTIONS (4)
  - Dyspnoea [Unknown]
  - Condition aggravated [Unknown]
  - Cough [Unknown]
  - Nasal congestion [Unknown]
